FAERS Safety Report 24532504 (Version 1)
Quarter: 2024Q4

REPORT INFORMATION
  Report Type: Report from Study
  Country: US (occurrence: US)
  Receive Date: 20241022
  Receipt Date: 20241022
  Transmission Date: 20250114
  Serious: No
  Sender: JOHNSON AND JOHNSON
  Company Number: US-JNJFOC-20240962038

PATIENT
  Age: 64 Year

DRUGS (1)
  1. TREMFYA [Suspect]
     Active Substance: GUSELKUMAB
     Indication: Product used for unknown indication
     Route: 065
     Dates: start: 20240915

REACTIONS (4)
  - Needle issue [Unknown]
  - Arthritis [Unknown]
  - Psoriasis [Unknown]
  - Anaemia [Unknown]
